FAERS Safety Report 10089328 (Version 6)
Quarter: 2015Q4

REPORT INFORMATION
  Report Type: Spontaneous
  Country: US (occurrence: US)
  Receive Date: 20140421
  Receipt Date: 20151029
  Transmission Date: 20160304
  Serious: Yes (Hospitalization, Disabling, Other)
  Sender: FDA-Public Use
  Company Number: US-009507513-1404USA006208

PATIENT
  Sex: Female
  Weight: 57.14 kg

DRUGS (5)
  1. FOSAMAX [Suspect]
     Active Substance: ALENDRONATE SODIUM
     Indication: OSTEOPENIA
  2. FOSAMAX [Suspect]
     Active Substance: ALENDRONATE SODIUM
     Indication: OSTEOPOROSIS
     Dosage: 70 MG, QW
     Route: 048
     Dates: start: 200406, end: 200810
  3. BISOPROLOL FUMARATE (+) HYDROCHLOROTHIAZIDE [Concomitant]
     Indication: HYPERTENSION
     Dosage: UNK
     Route: 048
     Dates: start: 2004
  4. RECLAST [Suspect]
     Active Substance: ZOLEDRONIC ACID
     Indication: OSTEOPOROSIS
     Dosage: UNK
     Dates: start: 201103
  5. DILTIAZEM [Concomitant]
     Active Substance: DILTIAZEM
     Indication: HYPERTENSION
     Dosage: UNK
     Dates: start: 2004

REACTIONS (14)
  - Calcium deficiency [Unknown]
  - Drug ineffective [Unknown]
  - Arthralgia [Unknown]
  - Medical device removal [Unknown]
  - Patellofemoral pain syndrome [Unknown]
  - Intramedullary rod insertion [Unknown]
  - Osteoporosis [Unknown]
  - Femur fracture [Recovered/Resolved]
  - Retinal detachment [Unknown]
  - Medical device pain [Unknown]
  - Meniscus injury [Unknown]
  - Vitamin D deficiency [Unknown]
  - Drug ineffective [Unknown]
  - Neuralgia [Unknown]

NARRATIVE: CASE EVENT DATE: 201105
